FAERS Safety Report 9134816 (Version 1)
Quarter: 2013Q1

REPORT INFORMATION
  Report Type: Spontaneous
  Country: US (occurrence: US)
  Receive Date: 20130304
  Receipt Date: 20130304
  Transmission Date: 20140127
  Serious: Yes (Hospitalization)
  Sender: FDA-Public Use
  Company Number: US-COVIDIEN/TYCO HEALTHCARE/MALLINCKRODT-T201300979

PATIENT
  Age: 72 Year
  Sex: Male

DRUGS (1)
  1. FENTANYL TRANSDERMAL SYSTEM [Suspect]
     Dosage: 75 UG/HR, UNK
     Route: 062

REACTIONS (3)
  - Withdrawal syndrome [Recovered/Resolved]
  - Sepsis [Unknown]
  - Pneumonia [Unknown]
